FAERS Safety Report 6921295-6 (Version None)
Quarter: 2010Q3

REPORT INFORMATION
  Report Type: 
  Country: None (occurrence: None)
  Receive Date: 20100812
  Receipt Date: 20100803
  Transmission Date: 20110219
  Serious: Yes (Life-Threatening, Hospitalization, Other)
  Sender: FDA-Public Use
  Company Number: B0666858A

PATIENT
  Sex: Male
  Weight: 71 kg

DRUGS (2)
  1. MARAVIROC [Suspect]
     Indication: HIV INFECTION
     Dosage: 300MG TWICE PER DAY
     Route: 048
     Dates: start: 20060308
  2. COMBIVIR [Suspect]
     Indication: HIV INFECTION
     Dosage: 450MG TWICE PER DAY
     Route: 048
     Dates: start: 20060308

REACTIONS (1)
  - ACUTE MYOCARDIAL INFARCTION [None]
